FAERS Safety Report 19413709 (Version 1)
Quarter: 2021Q2

REPORT INFORMATION
  Report Type: Spontaneous
  Country: FR (occurrence: FR)
  Receive Date: 20210614
  Receipt Date: 20210614
  Transmission Date: 20210717
  Serious: Yes (Hospitalization)
  Sender: FDA-Public Use
  Company Number: FR-NOVOPROD-819581

PATIENT
  Age: 39 Year
  Sex: Male

DRUGS (2)
  1. NOVOSEVEN [Suspect]
     Active Substance: COAGULATION FACTOR VIIA RECOMBINANT HUMAN
     Indication: GLANZMANN^S DISEASE
     Dosage: 10 MG, QOD
     Route: 065
  2. IRON [Concomitant]
     Active Substance: IRON
     Indication: GLANZMANN^S DISEASE
     Dosage: UNK
     Route: 042

REACTIONS (2)
  - Drug ineffective [Unknown]
  - Gastrointestinal haemorrhage [Not Recovered/Not Resolved]
